FAERS Safety Report 9912196 (Version 1)
Quarter: 2014Q1

REPORT INFORMATION
  Report Type: Report from Study
  Country: US (occurrence: US)
  Receive Date: 20140220
  Receipt Date: 20140220
  Transmission Date: 20141002
  Serious: Yes (Other)
  Sender: FDA-Public Use
  Company Number: US-ROCHE-1059499

PATIENT
  Sex: Female

DRUGS (2)
  1. RANIBIZUMAB [Suspect]
     Indication: AGE-RELATED MACULAR DEGENERATION
     Route: 050
     Dates: start: 200608
  2. BEVACIZUMAB [Suspect]
     Indication: AGE-RELATED MACULAR DEGENERATION
     Route: 050
     Dates: start: 2006, end: 200608

REACTIONS (4)
  - Eye irritation [Unknown]
  - Eye disorder [Unknown]
  - Eye pain [Unknown]
  - Photopsia [Unknown]
